FAERS Safety Report 6395588-8 (Version None)
Quarter: 2009Q4

REPORT INFORMATION
  Report Type: 
  Country: None (occurrence: None)
  Receive Date: 20091009
  Receipt Date: 20091002
  Transmission Date: 20100525
  Serious: Yes (Disabling)
  Sender: FDA-Public Use
  Company Number: JP-BRISTOL-MYERS SQUIBB COMPANY-14807291

PATIENT
  Age: 60 Year
  Sex: Male

DRUGS (2)
  1. REYATAZ [Suspect]
     Indication: HIV INFECTION
     Route: 048
     Dates: start: 20040311
  2. EPZICOM [Suspect]
     Dosage: 1 D.F= 1 TAB
     Dates: start: 20070413

REACTIONS (2)
  - METASTASES TO BONE [None]
  - SPINAL COMPRESSION FRACTURE [None]
